FAERS Safety Report 7106481-7 (Version None)
Quarter: 2010Q4

REPORT INFORMATION
  Report Type: 
  Country: None (occurrence: None)
  Receive Date: 20101116
  Receipt Date: 20101111
  Transmission Date: 20110411
  Serious: Yes (Hospitalization, Other)
  Sender: FDA-Public Use
  Company Number: BR-PFIZER INC-2010141395

PATIENT
  Sex: Female
  Weight: 42 kg

DRUGS (1)
  1. DEPO-PROVERA [Suspect]
     Indication: CONTRACEPTION
     Dosage: 150 MG, UNK
     Route: 030
     Dates: start: 20100826

REACTIONS (5)
  - CEREBRAL THROMBOSIS [None]
  - DIZZINESS [None]
  - HEADACHE [None]
  - NAUSEA [None]
  - VISION BLURRED [None]
